FAERS Safety Report 24402149 (Version 2)
Quarter: 2025Q2

REPORT INFORMATION
  Report Type: Report from Study
  Country: US (occurrence: US)
  Receive Date: 20241007
  Receipt Date: 20250428
  Transmission Date: 20250716
  Serious: Yes (Life-Threatening, Hospitalization, Other)
  Sender: EMD SERONO INC
  Company Number: US-Merck Healthcare KGaA-2024031582

PATIENT
  Age: 64 Year
  Sex: Female
  Weight: 49 kg

DRUGS (10)
  1. REBIF [Suspect]
     Active Substance: INTERFERON BETA-1A
     Indication: Multiple sclerosis
     Dosage: 44 UG/0.5 ML
     Dates: start: 2006
  2. REBIF [Suspect]
     Active Substance: INTERFERON BETA-1A
     Dosage: 44 UG/0.5 ML
     Dates: start: 20090116
  3. HYDROCORTISONE [Concomitant]
     Active Substance: HYDROCORTISONE
     Indication: Product used for unknown indication
     Dosage: WITH FOOD OR MILK
  4. ALPRAZOLAM [Concomitant]
     Active Substance: ALPRAZOLAM
     Indication: Product used for unknown indication
  5. MORPHINE SULFATE [Concomitant]
     Active Substance: MORPHINE SULFATE
     Indication: Product used for unknown indication
     Dosage: CAPSULE EXTENDED RELEASE
  6. SYMBICORT [Concomitant]
     Active Substance: BUDESONIDE\FORMOTEROL FUMARATE DIHYDRATE
     Indication: Product used for unknown indication
     Dosage: 160/4.5 MCG/ACT AEROSOL 2 PUFFS INHALATION TWICE A DAY
  7. ROSUVASTATIN CALCIUM [Concomitant]
     Active Substance: ROSUVASTATIN CALCIUM
     Indication: Product used for unknown indication
  8. VASCEPA [Concomitant]
     Active Substance: ICOSAPENT ETHYL
     Indication: Product used for unknown indication
     Dosage: WITH MEALS
  9. DEMEROL [Concomitant]
     Active Substance: MEPERIDINE HYDROCHLORIDE
     Indication: Product used for unknown indication
  10. AMPYRA [Concomitant]
     Active Substance: DALFAMPRIDINE
     Indication: Product used for unknown indication

REACTIONS (7)
  - Cardiac arrest [Unknown]
  - Syncope [Unknown]
  - Brain fog [Unknown]
  - Rib fracture [Unknown]
  - Heart rate increased [Unknown]
  - Chest injury [Unknown]
  - Victim of crime [Unknown]

NARRATIVE: CASE EVENT DATE: 20240519
